FAERS Safety Report 20948923 (Version 1)
Quarter: 2022Q2

REPORT INFORMATION
  Report Type: Spontaneous
  Country: US (occurrence: US)
  Receive Date: 20220612
  Receipt Date: 20220612
  Transmission Date: 20220721
  Serious: No
  Sender: FDA-Public Use
  Company Number: US-ELI_LILLY_AND_COMPANY-US202206005289

PATIENT
  Sex: Female

DRUGS (1)
  1. TALTZ [Suspect]
     Active Substance: IXEKIZUMAB
     Indication: Eczema
     Dosage: UNK UNK, UNKNOWN
     Route: 065
     Dates: start: 20220526

REACTIONS (2)
  - Hypersensitivity [Unknown]
  - Off label use [Unknown]
